FAERS Safety Report 4396136-4 (Version None)
Quarter: 2004Q3

REPORT INFORMATION
  Report Type: 
  Country: None (occurrence: None)
  Receive Date: 20040708
  Receipt Date: 20040622
  Transmission Date: 20050211
  Serious: Yes (Other)
  Sender: FDA-Public Use
  Company Number: A0515625A

PATIENT
  Age: 59 Year
  Sex: Male

DRUGS (11)
  1. COMMIT [Suspect]
     Indication: EX-SMOKER
     Dosage: 4 MG/ TRANSBUCCAL
     Route: 002
  2. VALSARTAN [Concomitant]
  3. CETIRIZINE HCL [Concomitant]
  4. TEMAZEPAM [Concomitant]
  5. FLUOXETINE HCL [Concomitant]
  6. FOLIC ACID [Concomitant]
  7. FERROUS SULFATE TAB [Concomitant]
  8. BEXTRA [Concomitant]
  9. SODIUM RABEPRZOLE [Concomitant]
  10. AZELASTINE HCL [Concomitant]
  11. METHOTREXATE [Concomitant]

REACTIONS (1)
  - FAECAL INCONTINENCE [None]
